FAERS Safety Report 5261910-9 (Version None)
Quarter: 2007Q1

REPORT INFORMATION
  Report Type: 
  Country: None (occurrence: None)
  Receive Date: 20070310
  Receipt Date: 20070228
  Transmission Date: 20070707
  Serious: Yes (Hospitalization)
  Sender: FDA-Public Use
  Company Number: 2006UW08277

PATIENT
  Sex: Female
  Weight: 86.4 kg

DRUGS (3)
  1. SEROQUEL [Suspect]
     Dosage: 100-200MG
     Route: 048
  2. STELAZINE [Concomitant]
  3. ZYPREXA/SYMYAX [Concomitant]

REACTIONS (4)
  - CEREBROVASCULAR ACCIDENT [None]
  - DIABETES MELLITUS [None]
  - INVESTIGATION [None]
  - MENTAL DISORDER [None]
